FAERS Safety Report 8780902 (Version 2)
Quarter: 2012Q4

REPORT INFORMATION
  Report Type: 
  Country: US (occurrence: US)
  Receive Date: 20120913
  Receipt Date: 20121105
  Transmission Date: 20130627
  Serious: No
  Sender: FDA-Public Use
  Company Number: US-009507513-1209USA002582

PATIENT
  Sex: Female

DRUGS (10)
  1. VICTRELIS [Suspect]
     Indication: HEPATITIS C
     Dosage: 800 mg, three times a day
     Route: 048
     Dates: start: 201208
  2. RIBASPHERE [Suspect]
  3. PEGASYS [Suspect]
  4. CELEBREX [Concomitant]
  5. ADVAIR [Concomitant]
     Dosage: UNK, prn
  6. ALBUTEROL [Concomitant]
     Dosage: UNK, prn
  7. VITAMIN D (UNSPECIFIED) [Concomitant]
     Dosage: 1000 mg, qd
  8. OMEGA-3 MARINE TRIGLYCERIDES [Concomitant]
     Dosage: 1000 mg, qd
  9. CVS GLUCOSAMINE CHONDROITIN REGULAR STRENGTH [Concomitant]
  10. OMEPRAZOLE SODIUM [Concomitant]
     Dosage: 20 mg, qd

REACTIONS (6)
  - Sinus headache [Not Recovered/Not Resolved]
  - Sinus congestion [Not Recovered/Not Resolved]
  - Epistaxis [Not Recovered/Not Resolved]
  - Pruritus generalised [Not Recovered/Not Resolved]
  - Alopecia [Not Recovered/Not Resolved]
  - Hair texture abnormal [Not Recovered/Not Resolved]
